FAERS Safety Report 18491997 (Version 1)
Quarter: 2020Q4

REPORT INFORMATION
  Report Type: Spontaneous
  Country: DE (occurrence: DE)
  Receive Date: 20201111
  Receipt Date: 20201111
  Transmission Date: 20210114
  Serious: Yes (Hospitalization, Other)
  Sender: FDA-Public Use
  Company Number: DE-PFIZER INC-2020437269

PATIENT
  Age: 77 Year
  Sex: Female
  Weight: 99 kg

DRUGS (17)
  1. PREGABALIN. [Suspect]
     Active Substance: PREGABALIN
     Dosage: 50 MG (1-0.5-0-5.0)
  2. PIPAMPERONE [Suspect]
     Active Substance: PIPAMPERONE
     Dosage: 40 MG (0.5-0-0-1)
  3. QUETIAPINE. [Concomitant]
     Active Substance: QUETIAPINE
     Dosage: 50 MG, 2X/DAY, (0-0-0-2)
  4. DIGITOXIN [Concomitant]
     Active Substance: DIGITOXIN
     Dosage: 0.1 MG, 1X/DAY (1-0-0-0)
  5. TORASEMID [Concomitant]
     Active Substance: TORSEMIDE
     Dosage: 20 MG, 2X/DAY (1-1-0-0)
  6. METAMIZOLE [Concomitant]
     Active Substance: METAMIZOLE
     Dosage: 500 MG, 3X/DAY (1-1-1-0)
  7. MAGNESIUM CITRATE. [Concomitant]
     Active Substance: MAGNESIUM CITRATE
     Dosage: 400 MG, 1X/DAY (0-0-1-0)
  8. BUDESONIDE. [Concomitant]
     Active Substance: BUDESONIDE
     Dosage: 0.4 MG, 2X/DAY (1-0-1-0)
  9. PANTOPRAZOL [PANTOPRAZOLE] [Concomitant]
     Active Substance: PANTOPRAZOLE
     Dosage: 20 MG, 1X/DAY (1-0-0-0)
  10. EDOXABAN [Concomitant]
     Active Substance: EDOXABAN TOSYLATE
     Dosage: 60 MG, 1X/DAY (1-0-0-0)
  11. BISOPROLOL [Suspect]
     Active Substance: BISOPROLOL
     Dosage: 5 MG, 2X/DAY (1-0-1-0)
  12. NALOXONE/TILIDINE [Concomitant]
     Active Substance: NALOXONE HYDROCHLORIDE\TILIDINE HYDROCHLORIDE
     Dosage: (1-0-0.5-0)
  13. LERCANIDIPINE [Concomitant]
     Active Substance: LERCANIDIPINE
     Dosage: 20 MG (1-0-0-0)
  14. INSULIN LISPRO [Concomitant]
     Active Substance: INSULIN LISPRO
     Dosage: 1 IU (8-10-12-0)
  15. LORAZEPAM. [Suspect]
     Active Substance: LORAZEPAM
     Dosage: 0.5 MG, 2X/DAY (1-0-0-1)
  16. MIRTAZAPIN [Concomitant]
     Active Substance: MIRTAZAPINE
     Dosage: 30 MG, 1X/DAY (0-0-1-0)
  17. LEVEMIR [Concomitant]
     Active Substance: INSULIN DETEMIR
     Dosage: 6 IU, 1X/DAY (0-0-1-0)

REACTIONS (3)
  - Depressed mood [Unknown]
  - Dyspnoea [Unknown]
  - Cardiac failure [Unknown]
